FAERS Safety Report 11174936 (Version 1)
Quarter: 2015Q2

REPORT INFORMATION
  Report Type: Spontaneous
  Country: US (occurrence: None)
  Receive Date: 20150608
  Receipt Date: 20150608
  Transmission Date: 20150821
  Serious: Yes (Other)
  Sender: FDA-Public Use
  Company Number: None

PATIENT
  Age: 63 Year
  Sex: Male
  Weight: 100.7 kg

DRUGS (7)
  1. SERTRALINE HCL [Suspect]
     Active Substance: SERTRALINE HYDROCHLORIDE
     Dosage: BY MOUTH
     Dates: start: 2013
  2. LOSARTAN POTASSIUM. [Suspect]
     Active Substance: LOSARTAN POTASSIUM
  3. TAMSULOSIN HCL [Suspect]
     Active Substance: TAMSULOSIN
  4. AMLODIPINE [Suspect]
     Active Substance: AMLODIPINE BESYLATE
  5. CARVEDILOL. [Suspect]
     Active Substance: CARVEDILOL
     Dosage: BY MOUTH
  6. HIGH BLOOD PRESSURE [Concomitant]
  7. C PAP MACHINE [Concomitant]

REACTIONS (2)
  - Weight increased [None]
  - Breast enlargement [None]
